FAERS Safety Report 9520184 (Version 1)
Quarter: 2013Q3

REPORT INFORMATION
  Report Type: Spontaneous
  Country: US (occurrence: US)
  Receive Date: 20130912
  Receipt Date: 20130912
  Transmission Date: 20140515
  Serious: No
  Sender: FDA-Public Use
  Company Number: US-MUTUAL PHARMACEUTICAL COMPANY, INC.-BCTM20120060

PATIENT
  Age: 40 Year
  Sex: Female
  Weight: 61.29 kg

DRUGS (8)
  1. BACTRIM DS 800 MG/ 160 MG [Suspect]
     Indication: ACNE
     Route: 065
     Dates: start: 20120905, end: 20120907
  2. BACTRIM DS 800 MG/ 160 MG [Suspect]
     Route: 048
     Dates: start: 201204
  3. BACTRIM DS 800 MG/ 160 MG [Suspect]
     Route: 048
     Dates: start: 201111
  4. SULFAMETHOXAZOLE AND TRIMETHOPRIM [Suspect]
     Indication: ACNE
     Route: 048
     Dates: end: 2011
  5. WELLBUTRIN [Concomitant]
     Indication: ANXIETY
     Route: 048
     Dates: start: 201202
  6. WELLBUTRIN [Concomitant]
     Indication: DEPRESSION
  7. PRISTIQ [Concomitant]
     Indication: ANXIETY
     Route: 048
     Dates: start: 201207
  8. PRISTIQ [Concomitant]
     Indication: DEPRESSION

REACTIONS (1)
  - Migraine [Recovered/Resolved]
